FAERS Safety Report 4919689-3 (Version None)
Quarter: 2006Q1

REPORT INFORMATION
  Report Type: 
  Country: None (occurrence: None)
  Receive Date: 20060221
  Receipt Date: 20060209
  Transmission Date: 20060701
  Serious: Yes (Other)
  Sender: FDA-Public Use
  Company Number: 2006022070

PATIENT
  Sex: 0

DRUGS (2)
  1. SERTRALINE [Suspect]
     Indication: MAJOR DEPRESSION
     Dosage: MEAN STUDY DOSAGE: 167.9+/-19.5 MG,
  2. ZIPRASIDONE (CAPS) (ZIPRASIDONE) [Suspect]
     Indication: MAJOR DEPRESSION
     Dosage: MEAN STUDY DOSAGE: 81.5+/- 33.4 MG,

REACTIONS (1)
  - SUICIDAL IDEATION [None]
